FAERS Safety Report 8205007-4 (Version None)
Quarter: 2012Q1

REPORT INFORMATION
  Report Type: 
  Country: None (occurrence: None)
  Receive Date: 20120313
  Receipt Date: 20120302
  Transmission Date: 20120608
  Serious: Yes (Other)
  Sender: FDA-Public Use
  Company Number: US-JNJFOC-20111203316

PATIENT
  Sex: Female
  Weight: 72.58 kg

DRUGS (11)
  1. REMICADE [Suspect]
     Route: 042
     Dates: start: 20110317
  2. REMICADE [Suspect]
     Route: 042
     Dates: start: 20111018
  3. REMICADE [Suspect]
     Indication: RHEUMATOID ARTHRITIS
     Route: 042
  4. REMICADE [Suspect]
     Route: 042
     Dates: start: 20110414
  5. FOLIC ACID [Concomitant]
     Indication: ARTHRITIS
  6. REMICADE [Suspect]
     Route: 042
     Dates: start: 20110302
  7. REMICADE [Suspect]
     Route: 042
     Dates: start: 20110811
  8. NIFEDIAC [Concomitant]
     Indication: BLOOD PRESSURE
  9. CAPTOPRIL [Concomitant]
     Indication: BLOOD PRESSURE
  10. METOPROLOL SUCCINATE [Concomitant]
     Indication: BLOOD PRESSURE
  11. REMICADE [Suspect]
     Route: 042
     Dates: start: 20110609

REACTIONS (4)
  - DERMATITIS [None]
  - EPIDERMAL NECROSIS [None]
  - DRUG ERUPTION [None]
  - ARTHRITIS [None]
